FAERS Safety Report 16881265 (Version 1)
Quarter: 2019Q4

REPORT INFORMATION
  Report Type: Spontaneous
  Country: US (occurrence: US)
  Receive Date: 20191003
  Receipt Date: 20191003
  Transmission Date: 20200122
  Serious: Yes (Death, Other)
  Sender: FDA-Public Use
  Company Number: US-HIKMA PHARMACEUTICALS USA INC.-US-H14001-19-05124

PATIENT
  Age: 71 Year
  Sex: Male

DRUGS (6)
  1. PAZOPANIB [Suspect]
     Active Substance: PAZOPANIB
     Indication: HORMONE-REFRACTORY PROSTATE CANCER
     Route: 048
  2. DOCETAXEL. [Suspect]
     Active Substance: DOCETAXEL
     Indication: HORMONE-REFRACTORY PROSTATE CANCER
     Route: 042
  3. PAZOPANIB [Suspect]
     Active Substance: PAZOPANIB
     Route: 065
  4. PREDNISONE. [Suspect]
     Active Substance: PREDNISONE
     Indication: HORMONE-REFRACTORY PROSTATE CANCER
     Route: 065
  5. PAZOPANIB [Suspect]
     Active Substance: PAZOPANIB
     Route: 065
  6. DOCETAXEL. [Suspect]
     Active Substance: DOCETAXEL
     Route: 065

REACTIONS (2)
  - Pneumonitis [Fatal]
  - Toxicity to various agents [Unknown]
